FAERS Safety Report 25599641 (Version 1)
Quarter: 2025Q3

REPORT INFORMATION
  Report Type: Spontaneous
  Country: US (occurrence: US)
  Receive Date: 20250724
  Receipt Date: 20250724
  Transmission Date: 20251020
  Serious: Yes (Other)
  Sender: CSL BEHRING
  Company Number: US-BEH-2024180727

PATIENT
  Age: 84 Year
  Sex: Male

DRUGS (2)
  1. ALBUMIN HUMAN [Suspect]
     Active Substance: ALBUMIN HUMAN
     Indication: Shock
     Route: 065
  2. ALBUMIN HUMAN [Suspect]
     Active Substance: ALBUMIN HUMAN
     Indication: Hypoalbuminaemia
     Route: 065

REACTIONS (5)
  - Anaphylactic shock [Recovering/Resolving]
  - Anaphylactic reaction [Recovering/Resolving]
  - Shock [Recovering/Resolving]
  - Respiratory failure [Recovering/Resolving]
  - Rash pruritic [Recovering/Resolving]
